FAERS Safety Report 4975559-6 (Version None)
Quarter: 2006Q2

REPORT INFORMATION
  Report Type: 
  Country: None (occurrence: None)
  Receive Date: 20060410
  Receipt Date: 20060329
  Transmission Date: 20061013
  Serious: Yes (Death)
  Sender: FDA-Public Use
  Company Number: DE200601001723

PATIENT
  Age: 70 Year
  Sex: Female
  Weight: 116 kg

DRUGS (10)
  1. ZYPREXA [Suspect]
     Indication: SCHIZOAFFECTIVE DISORDER
     Dosage: SEE IMAGE
     Route: 048
     Dates: start: 20051229, end: 20060109
  2. ZYPREXA [Suspect]
     Indication: SCHIZOAFFECTIVE DISORDER
     Dosage: SEE IMAGE
     Route: 048
     Dates: end: 20060109
  3. LITHIUM (LITHIUM) [Concomitant]
  4. SPIRONOLACTONE [Concomitant]
  5. PANTOZOL /GFR/ (PANTOPRAZOLE SODIUM) [Concomitant]
  6. TOREM /GFR/ (TORASEMIDE) [Concomitant]
  7. ATACAND SWE/ (CANDESARTAN CILEXETIL) [Concomitant]
  8. ALLOPURINOL [Concomitant]
  9. CYANOCOBALAMIN [Concomitant]
  10. LAUBEEL (LORAZEPAM) [Concomitant]

REACTIONS (4)
  - ACUTE LEFT VENTRICULAR FAILURE [None]
  - ELECTROCARDIOGRAM QT PROLONGED [None]
  - OVERDOSE [None]
  - RESTLESSNESS [None]
